APPROVED DRUG PRODUCT: KABIVEN IN PLASTIC CONTAINER
Active Ingredient: AMINO ACIDS; CALCIUM CHLORIDE; DEXTROSE; MAGNESIUM SULFATE; POTASSIUM CHLORIDE; SODIUM ACETATE; SODIUM GLYCEROPHOSPHATE; SOYBEAN OIL
Strength: 3.3%;29MG/100ML;9.8GM/100ML;96MG/100ML;174MG/100ML;239MG/100ML;147MG/100ML;3.9GM/100ML (2566ML)
Dosage Form/Route: EMULSION;INTRAVENOUS
Application: N200656 | Product #007
Applicant: FRESENIUS KABI USA LLC
Approved: Aug 25, 2014 | RLD: Yes | RS: Yes | Type: RX

PATENTS:
Patent 12390398 | Expires: May 3, 2036